FAERS Safety Report 16781809 (Version 1)
Quarter: 2019Q4

REPORT INFORMATION
  Report Type: Spontaneous
  Country: US (occurrence: US)
  Receive Date: 20190906
  Receipt Date: 20190906
  Transmission Date: 20200122
  Serious: Yes (Disabling, Other)
  Sender: FDA-Public Use
  Company Number: None

PATIENT
  Age: 52 Year
  Sex: Female
  Weight: 62.1 kg

DRUGS (12)
  1. OXYCODONE HCL 10 MG TABLETS [Suspect]
     Active Substance: OXYCODONE HYDROCHLORIDE
     Indication: BACK PAIN
     Dosage: ?          QUANTITY:60 TABLET(S);?
     Route: 048
     Dates: start: 20190904
  2. BUPROPION. [Concomitant]
     Active Substance: BUPROPION
  3. KADIAN [Concomitant]
     Active Substance: MORPHINE SULFATE
  4. ROSUVASTATIN. [Concomitant]
     Active Substance: ROSUVASTATIN
  5. ATORVASTATIN [Concomitant]
     Active Substance: ATORVASTATIN
  6. OXYCODONE HYDROCHLORIDE. [Concomitant]
     Active Substance: OXYCODONE HYDROCHLORIDE
  7. GABAPENTIN 600 MG [Concomitant]
     Active Substance: GABAPENTIN
  8. BABY ASPIRIN [Concomitant]
     Active Substance: ASPIRIN
  9. CLOPIDODRIL [Concomitant]
  10. OXYCODONE HCL 10 MG TABLETS [Suspect]
     Active Substance: OXYCODONE HYDROCHLORIDE
     Indication: PAIN IN EXTREMITY
     Dosage: ?          QUANTITY:60 TABLET(S);?
     Route: 048
     Dates: start: 20190904
  11. METOPROLOL. [Concomitant]
     Active Substance: METOPROLOL
  12. TYLENOL 650 MG [Concomitant]

REACTIONS (4)
  - Product substitution issue [None]
  - Drug ineffective [None]
  - Withdrawal syndrome [None]
  - Pain [None]

NARRATIVE: CASE EVENT DATE: 20190906
